FAERS Safety Report 10085578 (Version 3)
Quarter: 2016Q1

REPORT INFORMATION
  Report Type: Spontaneous
  Country: IT (occurrence: IT)
  Receive Date: 20140418
  Receipt Date: 20160201
  Transmission Date: 20160525
  Serious: Yes (Other)
  Sender: FDA-Public Use
  Company Number: IT-009507513-1404ITA008928

PATIENT
  Age: 24 Year
  Sex: Male

DRUGS (5)
  1. SIMVASTATIN. [Suspect]
     Active Substance: SIMVASTATIN
     Indication: HYPERCHOLESTEROLAEMIA
     Dosage: 20 MG, QD
     Route: 048
  2. SIMVASTATIN. [Suspect]
     Active Substance: SIMVASTATIN
     Dosage: 60 MG, QD
     Route: 048
  3. CHENODIOL. [Suspect]
     Active Substance: CHENODIOL
     Indication: HYPERCHOLESTEROLAEMIA
     Dosage: 500 MG, QD
     Route: 048
  4. SIMVASTATIN. [Suspect]
     Active Substance: SIMVASTATIN
     Dosage: 40 MG,QD
     Route: 048
  5. EZETIMIBE. [Concomitant]
     Active Substance: EZETIMIBE
     Dosage: 10 MG, UNK
     Route: 048

REACTIONS (3)
  - Muscle spasms [Recovered/Resolved]
  - Blood creatine phosphokinase increased [Recovered/Resolved]
  - Diarrhoea [Recovered/Resolved]
